FAERS Safety Report 21859388 (Version 1)
Quarter: 2023Q1

REPORT INFORMATION
  Report Type: Spontaneous
  Country: US (occurrence: US)
  Receive Date: 20230113
  Receipt Date: 20230113
  Transmission Date: 20230418
  Serious: Yes (Other)
  Sender: FDA-Public Use
  Company Number: US-MYLANLABS-2023M1003605

PATIENT
  Age: 41 Year
  Sex: Male

DRUGS (4)
  1. ACITRETIN [Suspect]
     Active Substance: ACITRETIN
     Indication: Keratosis follicular
     Dosage: 25 MILLIGRAM, QD
     Route: 065
  2. ACITRETIN [Suspect]
     Active Substance: ACITRETIN
     Indication: Acral peeling skin syndrome
     Dosage: 50 MILLIGRAM, QD
     Route: 065
  3. BETAMETHASONE DIPROPIONATE [Concomitant]
     Active Substance: BETAMETHASONE DIPROPIONATE
     Indication: Keratosis follicular
     Dosage: UNK
     Route: 065
  4. BETAMETHASONE DIPROPIONATE [Concomitant]
     Active Substance: BETAMETHASONE DIPROPIONATE
     Indication: Acral peeling skin syndrome

REACTIONS (3)
  - Keratosis follicular [Unknown]
  - Condition aggravated [Unknown]
  - Off label use [Unknown]
